FAERS Safety Report 11235750 (Version 2)
Quarter: 2015Q3

REPORT INFORMATION
  Report Type: Report from Study
  Country: US (occurrence: US)
  Receive Date: 20150702
  Receipt Date: 20150725
  Transmission Date: 20151125
  Serious: No
  Sender: FDA-Public Use
  Company Number: PHEH2015US008613

PATIENT
  Age: 55 Year
  Sex: Female
  Weight: 48.98 kg

DRUGS (2)
  1. GINGER. [Concomitant]
     Active Substance: GINGER
     Indication: PRODUCT USED FOR UNKNOWN INDICATION
     Route: 065
  2. GILENYA [Suspect]
     Active Substance: FINGOLIMOD HYDROCHLORIDE
     Indication: MULTIPLE SCLEROSIS
     Dosage: 0.5 MG, QD
     Route: 048
     Dates: start: 20150422

REACTIONS (14)
  - Pyrexia [Recovering/Resolving]
  - Abdominal discomfort [Not Recovered/Not Resolved]
  - Dehydration [Unknown]
  - Somnolence [Unknown]
  - Nausea [Recovering/Resolving]
  - Fatigue [Unknown]
  - Vitreous floaters [Not Recovered/Not Resolved]
  - Headache [Recovering/Resolving]
  - Thirst [Unknown]
  - Visual impairment [Not Recovered/Not Resolved]
  - Malaise [Unknown]
  - Vertigo [Unknown]
  - Chills [Recovering/Resolving]
  - Dizziness [Unknown]

NARRATIVE: CASE EVENT DATE: 20150422
